FAERS Safety Report 20155800 (Version 2)
Quarter: 2021Q4

REPORT INFORMATION
  Report Type: Report from Study
  Country: US (occurrence: US)
  Receive Date: 20211207
  Receipt Date: 20211227
  Transmission Date: 20220303
  Serious: Yes (Hospitalization, Other)
  Sender: FDA-Public Use
  Company Number: US-TAKEDA-2020TUS046608

PATIENT
  Sex: Female
  Weight: 45 kg

DRUGS (1)
  1. VEDOLIZUMAB [Suspect]
     Active Substance: VEDOLIZUMAB
     Indication: Crohn^s disease
     Dosage: 300 MILLIGRAM, Q4WEEKS
     Route: 042
     Dates: start: 202001

REACTIONS (6)
  - Procedural complication [Unknown]
  - Gallbladder operation [Unknown]
  - Weight decreased [Unknown]
  - Diarrhoea [Unknown]
  - Pain [Unknown]
  - Off label use [Unknown]
